FAERS Safety Report 10715880 (Version 2)
Quarter: 2015Q3

REPORT INFORMATION
  Report Type: Spontaneous
  Country: US (occurrence: None)
  Receive Date: 20150109
  Receipt Date: 20150716
  Transmission Date: 20151125
  Serious: Yes (Other)
  Sender: FDA-Public Use
  Company Number: 2014PROUSA04122

PATIENT
  Age: 86 Year
  Sex: Male
  Weight: 65.8 kg

DRUGS (8)
  1. RESTASIS (CICLOSPORIN) [Concomitant]
  2. PROVENGE [Suspect]
     Active Substance: SIPULEUCEL-T
     Indication: PROSTATE CANCER METASTATIC
     Route: 042
     Dates: start: 20141009, end: 20141009
  3. CALCIUM (CALCIUM CARBONATE) [Concomitant]
  4. SYNTHROID [Concomitant]
     Active Substance: LEVOTHYROXINE SODIUM
  5. TRAMADOL (TRAMADOL HYDROCHLORIDE) [Concomitant]
     Active Substance: TRAMADOL HYDROCHLORIDE
  6. DICLOFENAC SODIUM ER (DICLOFENAC SODIUM) [Concomitant]
  7. VITAMIN D (COLECALCIFEROL) [Concomitant]
  8. NEXIUM [Concomitant]
     Active Substance: ESOMEPRAZOLE MAGNESIUM

REACTIONS (6)
  - Blood urea increased [None]
  - Blood potassium increased [None]
  - Haemoglobin decreased [None]
  - Cyst [None]
  - Bone marrow disorder [None]
  - Blood alkaline phosphatase increased [None]

NARRATIVE: CASE EVENT DATE: 2014
